FAERS Safety Report 8200568-3 (Version None)
Quarter: 2012Q1

REPORT INFORMATION
  Report Type: 
  Country: None (occurrence: None)
  Receive Date: 20120312
  Receipt Date: 20120221
  Transmission Date: 20120608
  Serious: Yes (Hospitalization, Other)
  Sender: FDA-Public Use
  Company Number: US-ASTRAZENECA-2012SE12214

PATIENT
  Sex: Female

DRUGS (2)
  1. OTHER MEDICATIONS [Concomitant]
  2. NEXIUM [Suspect]
     Route: 048

REACTIONS (4)
  - GASTROINTESTINAL INFLAMMATION [None]
  - COUGH [None]
  - DEPRESSION [None]
  - DRUG DOSE OMISSION [None]
